FAERS Safety Report 15870264 (Version 1)
Quarter: 2019Q1

REPORT INFORMATION
  Report Type: Other
  Country: US (occurrence: US)
  Receive Date: 20190125
  Receipt Date: 20190125
  Transmission Date: 20190417
  Serious: No
  Sender: FDA-Public Use
  Company Number: US-ACORDA-ACO_149531_2018

PATIENT
  Sex: Female

DRUGS (1)
  1. AMPYRA [Suspect]
     Active Substance: DALFAMPRIDINE
     Indication: MULTIPLE SCLEROSIS
     Dosage: 10 MG, Q 12 HRS
     Route: 048
     Dates: start: 20171027

REACTIONS (20)
  - Abdominal discomfort [Unknown]
  - Headache [Unknown]
  - Pain in extremity [Unknown]
  - Rash [Unknown]
  - Blood pressure inadequately controlled [Unknown]
  - Temperature intolerance [Unknown]
  - Vomiting [Unknown]
  - Fatigue [Unknown]
  - Palpitations [Unknown]
  - Abdominal pain upper [Unknown]
  - Breast pain [Unknown]
  - Muscle spasms [Unknown]
  - Gait disturbance [Not Recovered/Not Resolved]
  - Carpal tunnel syndrome [Unknown]
  - Blood pressure increased [Recovered/Resolved]
  - Musculoskeletal stiffness [Unknown]
  - Ill-defined disorder [Unknown]
  - Nausea [Unknown]
  - Dizziness [Unknown]
  - Multiple sclerosis [Unknown]

NARRATIVE: CASE EVENT DATE: 2017
